FAERS Safety Report 16032967 (Version 3)
Quarter: 2019Q1

REPORT INFORMATION
  Report Type: Spontaneous
  Country: US (occurrence: US)
  Receive Date: 20190305
  Receipt Date: 20190326
  Transmission Date: 20190418
  Serious: Yes (Hospitalization)
  Sender: FDA-Public Use
  Company Number: US-UNITED THERAPEUTICS-UNT-2019-003508

PATIENT
  Age: 57 Year
  Sex: Female

DRUGS (3)
  1. REMODULIN [Suspect]
     Active Substance: TREPROSTINIL
     Dosage: UNK
     Route: 041
     Dates: start: 20180805
  2. REMODULIN [Suspect]
     Active Substance: TREPROSTINIL
     Indication: PULMONARY ARTERIAL HYPERTENSION
     Dosage: 0.040 ?G/KG, CONTINUING
     Route: 041
     Dates: start: 20180804
  3. LETAIRIS [Concomitant]
     Active Substance: AMBRISENTAN
     Indication: PRODUCT USED FOR UNKNOWN INDICATION
     Route: 065

REACTIONS (10)
  - Muscular weakness [Unknown]
  - Medical device change [Unknown]
  - Vision blurred [Unknown]
  - Emotional distress [Unknown]
  - Syncope [Unknown]
  - Musculoskeletal stiffness [Recovered/Resolved]
  - Hypotension [Unknown]
  - Dizziness [Unknown]
  - Hypoaesthesia [Unknown]
  - Confusional state [Unknown]

NARRATIVE: CASE EVENT DATE: 20190223
